FAERS Safety Report 19937029 (Version 2)
Quarter: 2021Q4

REPORT INFORMATION
  Report Type: Report from Study
  Country: FR (occurrence: FR)
  Receive Date: 20211009
  Receipt Date: 20211013
  Transmission Date: 20220303
  Serious: Yes (Death)
  Sender: FDA-Public Use
  Company Number: FR-ROCHE-2929878

PATIENT
  Sex: Female

DRUGS (6)
  1. ATEZOLIZUMAB [Suspect]
     Active Substance: ATEZOLIZUMAB
     Indication: Cervix carcinoma
     Dosage: DAY 1,?CUMULATIVE DOSE OF 21600 MILLIGRAM BEFORE EVENT ONSET
     Route: 042
     Dates: start: 20210908, end: 20210908
  2. CISPLATIN [Suspect]
     Active Substance: CISPLATIN
     Indication: Cervix carcinoma
     Dosage: FOR A CUMULATIVE DOSE OF 350 MILLIGRAM BEFORE EVENT ONSET
     Route: 042
     Dates: start: 20200916, end: 20201014
  3. HYDROCHLOROTHIAZIDE\NEBIVOLOL HYDROCHLORIDE [Concomitant]
     Active Substance: HYDROCHLOROTHIAZIDE\NEBIVOLOL HYDROCHLORIDE
     Indication: Hypertension
     Dosage: 5MG/12.5MG FROM OCT-2017,
     Route: 048
  4. ESTRADIOL [Concomitant]
     Active Substance: ESTRADIOL
  5. AERIUS [Concomitant]
  6. PRAZEPAM [Concomitant]
     Active Substance: PRAZEPAM

REACTIONS (1)
  - Acute myocardial infarction [Fatal]

NARRATIVE: CASE EVENT DATE: 20210922
